FAERS Safety Report 7632375-4 (Version None)
Quarter: 2011Q3

REPORT INFORMATION
  Report Type: 
  Country: None (occurrence: None)
  Receive Date: 20110725
  Receipt Date: 20110714
  Transmission Date: 20111222
  Serious: Yes (Other)
  Sender: FDA-Public Use
  Company Number: US-JNJFOC-20110707198

PATIENT
  Sex: Female

DRUGS (1)
  1. REMICADE [Suspect]
     Indication: ANKYLOSING SPONDYLITIS
     Dosage: 2 INDUCTION DOSES IN 2011
     Route: 042
     Dates: start: 20110101, end: 20110101

REACTIONS (2)
  - ARTHRALGIA [None]
  - LUPUS-LIKE SYNDROME [None]
